FAERS Safety Report 4767501-8 (Version None)
Quarter: 2005Q3

REPORT INFORMATION
  Report Type: 
  Country: None (occurrence: None)
  Receive Date: 20050912
  Receipt Date: 20050829
  Transmission Date: 20060218
  Serious: Yes (Other)
  Sender: FDA-Public Use
  Company Number: 2005113672

PATIENT
  Age: 59 Year
  Sex: Female
  Weight: 61.2356 kg

DRUGS (1)
  1. FRESHBURST LISTERINE (MENTHOL, METHYL SALICYLATE, EUCALYPTOL, THYMOL) [Suspect]
     Indication: DENTAL DISORDER PROPHYLAXIS
     Dosage: TWICE A DAY, ORAL TOPICAL
     Route: 061
     Dates: start: 20050701, end: 20050801

REACTIONS (3)
  - ABSCESS BACTERIAL [None]
  - GINGIVAL ABSCESS [None]
  - ORAL PAIN [None]
